FAERS Safety Report 8062806-X (Version None)
Quarter: 2012Q1

REPORT INFORMATION
  Report Type: 
  Country: None (occurrence: None)
  Receive Date: 20120118
  Receipt Date: 20120110
  Transmission Date: 20120608
  Serious: Yes (Life-Threatening)
  Sender: FDA-Public Use
  Company Number: 2012SP001985

PATIENT
  Age: 72 Year
  Sex: Male

DRUGS (1)
  1. DULERA ORAL INHALATION [Suspect]
     Indication: PRODUCT USED FOR UNKNOWN INDICATION
     Dosage: BID;RESP
     Route: 055

REACTIONS (2)
  - HEADACHE [None]
  - FEELING ABNORMAL [None]
